FAERS Safety Report 9224789 (Version 1)
Quarter: 2013Q2

REPORT INFORMATION
  Report Type: Spontaneous
  Country: US (occurrence: None)
  Receive Date: 20130409
  Receipt Date: 20130409
  Transmission Date: 20140414
  Serious: Yes (Hospitalization)
  Sender: FDA-Public Use
  Company Number: ALK-2013-001444

PATIENT
  Age: 61 Year
  Sex: Male

DRUGS (1)
  1. VIVITROL (VIVITROL_NDA) INJECTION, 380MG [Suspect]
     Indication: ALCOHOLISM
     Dosage: 380 MG, QMO, INTRAMUSCULAR
     Route: 030
     Dates: start: 2012

REACTIONS (1)
  - Thrombosis [None]
